FAERS Safety Report 14838082 (Version 3)
Quarter: 2018Q2

REPORT INFORMATION
  Report Type: Spontaneous
  Country: US (occurrence: US)
  Receive Date: 20180502
  Receipt Date: 20180619
  Transmission Date: 20180711
  Serious: Yes (Other)
  Sender: FDA-Public Use
  Company Number: US-PFIZER INC-2018172049

PATIENT
  Age: 57 Year
  Sex: Male

DRUGS (1)
  1. ATROPINE SULFATE. [Suspect]
     Active Substance: ATROPINE SULFATE
     Indication: DRY MOUTH
     Dosage: 113 MG, UNK  (APPROXIMATELY ^THREE FOURTHS^ OF THIS 15-ML BOTTLE OF 1% ATROPINE OR 113 MG)

REACTIONS (4)
  - Delirium [Recovered/Resolved]
  - Cholinergic syndrome [Not Recovered/Not Resolved]
  - Accidental overdose [Recovered/Resolved]
  - Dysarthria [Recovered/Resolved]
